FAERS Safety Report 5154719-8 (Version None)
Quarter: 2006Q4

REPORT INFORMATION
  Report Type: 
  Country: None (occurrence: None)
  Receive Date: 20061116
  Receipt Date: 20061116
  Transmission Date: 20070319
  Serious: Yes (Other)
  Sender: FDA-Public Use
  Company Number: None

PATIENT
  Age: 60 Year
  Sex: Female
  Weight: 71.2147 kg

DRUGS (2)
  1. IPRATROPIUM BROMIDE [Suspect]
     Indication: CHRONIC OBSTRUCTIVE PULMONARY DISEASE
     Dosage: 4X'S DAILY  INH
     Route: 055
     Dates: start: 20060301
  2. ALBUTEROL SULFATE - DEY .083% [Suspect]
     Indication: CHRONIC OBSTRUCTIVE PULMONARY DISEASE
     Dosage: 4X'S DAILY
     Dates: start: 20060301

REACTIONS (2)
  - TOOTH DISORDER [None]
  - WRONG TECHNIQUE IN DRUG USAGE PROCESS [None]
